FAERS Safety Report 4964886-4 (Version None)
Quarter: 2006Q2

REPORT INFORMATION
  Report Type: 
  Country: None (occurrence: None)
  Receive Date: 20060403
  Receipt Date: 20060317
  Transmission Date: 20061013
  Serious: Yes (Hospitalization)
  Sender: FDA-Public Use
  Company Number: 230001K06BRA

PATIENT
  Sex: Male

DRUGS (3)
  1. REBIF [Suspect]
     Indication: MULTIPLE SCLEROSIS
     Dosage: 44 MCG, 3 IN 1 WEEKS
  2. AMANTADINE HCL [Concomitant]
  3. FLUOXETINE HYDROCHLORIDE [Concomitant]

REACTIONS (2)
  - CONVULSION [None]
  - SYNCOPE [None]
